FAERS Safety Report 7291144-8 (Version None)
Quarter: 2011Q1

REPORT INFORMATION
  Report Type: 
  Country: None (occurrence: None)
  Receive Date: 20110202
  Receipt Date: 20110118
  Transmission Date: 20110831
  Serious: Yes (Other)
  Sender: FDA-Public Use
  Company Number: B0696676A

PATIENT
  Age: 13 Month
  Sex: Female

DRUGS (1)
  1. LAMOTRIGINE [Suspect]
     Indication: PRODUCT USED FOR UNKNOWN INDICATION
     Dosage: 200 MG/ORAL
     Route: 048

REACTIONS (7)
  - CONVULSION [None]
  - OVERDOSE [None]
  - ATAXIA [None]
  - LETHARGY [None]
  - NYSTAGMUS [None]
  - ACCIDENTAL DRUG INTAKE BY CHILD [None]
  - TONIC CLONIC MOVEMENTS [None]
